FAERS Safety Report 4306965-0 (Version None)
Quarter: 2004Q1

REPORT INFORMATION
  Report Type: 
  Country: None (occurrence: None)
  Receive Date: 20040225
  Receipt Date: 20040211
  Transmission Date: 20041129
  Serious: Yes (Hospitalization)
  Sender: FDA-Public Use
  Company Number: US_0402100495

PATIENT
  Age: 47 Year
  Sex: Male
  Weight: 80 kg

DRUGS (3)
  1. ZYPREXA [Suspect]
     Indication: SCHIZOPHRENIA
     Dates: end: 20040111
  2. RISPERDAL [Concomitant]
  3. PIMOZIDE [Concomitant]

REACTIONS (4)
  - HAEMORRHAGE [None]
  - NEUROLEPTIC MALIGNANT SYNDROME [None]
  - OESOPHAGEAL RUPTURE [None]
  - VOMITING [None]
